FAERS Safety Report 10405666 (Version 2)
Quarter: 2014Q4

REPORT INFORMATION
  Report Type: Spontaneous
  Country: US (occurrence: US)
  Receive Date: 20140825
  Receipt Date: 20141002
  Transmission Date: 20150528
  Serious: Yes (Other)
  Sender: FDA-Public Use
  Company Number: US-ASTELLAS-2014US010540

PATIENT
  Age: 70 Year
  Sex: Male

DRUGS (2)
  1. ANTIBIOTICS [Suspect]
     Active Substance: UNSPECIFIED INGREDIENT
     Indication: PRODUCT USED FOR UNKNOWN INDICATION
     Dosage: UNK UNK, UNKNOWN FREQ.
     Route: 065
  2. VESICARE [Suspect]
     Active Substance: SOLIFENACIN SUCCINATE
     Indication: BLADDER DISORDER
     Route: 065
     Dates: start: 201407, end: 2014

REACTIONS (4)
  - Rash [Unknown]
  - Genital rash [Unknown]
  - Genital swelling [Unknown]
  - Erythema [Unknown]

NARRATIVE: CASE EVENT DATE: 201408
